FAERS Safety Report 9892826 (Version 2)
Quarter: 2014Q1

REPORT INFORMATION
  Report Type: Spontaneous
  Country: DE (occurrence: DE)
  Receive Date: 20140213
  Receipt Date: 20140326
  Transmission Date: 20141002
  Serious: Yes (Hospitalization, Other)
  Sender: FDA-Public Use
  Company Number: DE-MERCK-1402DEU004648

PATIENT
  Age: 58 Year
  Sex: Female
  Weight: 81 kg

DRUGS (9)
  1. TEMODAL [Suspect]
     Indication: CHEMOTHERAPY
     Dosage: 75 MG/M2, QD
     Route: 048
     Dates: start: 20131205, end: 20140102
  2. CIPROBAY [Concomitant]
     Indication: PROPHYLAXIS
     Dosage: 500 MG, UNK
     Route: 048
     Dates: start: 201401
  3. ACYCLOVIR [Concomitant]
     Indication: PROPHYLAXIS
     Dosage: UNK
     Route: 048
     Dates: start: 20140115
  4. DIFLUCAN [Concomitant]
     Indication: PROPHYLAXIS
     Dosage: UNK
     Route: 048
     Dates: start: 20140115
  5. CARVEDILOL [Concomitant]
     Route: 048
  6. L-THYROXIN [Concomitant]
     Route: 048
  7. METFORMIN [Concomitant]
     Route: 048
  8. EXFORGE [Concomitant]
     Route: 048
  9. HYDROCHLOROTHIAZIDE [Concomitant]
     Route: 048

REACTIONS (2)
  - Bone marrow toxicity [Not Recovered/Not Resolved]
  - Pancytopenia [Not Recovered/Not Resolved]
